FAERS Safety Report 7539313-3 (Version None)
Quarter: 2011Q2

REPORT INFORMATION
  Report Type: 
  Country: None (occurrence: None)
  Receive Date: 20110610
  Receipt Date: 20110607
  Transmission Date: 20111010
  Serious: Yes (Other)
  Sender: FDA-Public Use
  Company Number: US-AMGEN-USASP2011023854

PATIENT
  Age: 72 Year
  Sex: Female
  Weight: 96.62 kg

DRUGS (11)
  1. CORTICOSTEROIDS [Concomitant]
  2. METOPROLOL SUCCINATE [Concomitant]
     Dosage: 50 MG, BID
     Dates: start: 20100908
  3. FERROUS SULFATE TAB [Concomitant]
  4. GLIPIZIDE [Concomitant]
     Dosage: 10 MG, BID
     Route: 048
     Dates: start: 20101105
  5. WINRHO [Concomitant]
     Dosage: UNK
     Dates: start: 20100718
  6. INSULIN [Concomitant]
  7. NPLATE [Suspect]
     Indication: IDIOPATHIC THROMBOCYTOPENIC PURPURA
     Dosage: 8 A?G/KG, QWK
     Route: 058
     Dates: start: 20100706, end: 20110331
  8. RITUXIMAB [Concomitant]
  9. LASIX [Concomitant]
     Dosage: 80 MG, TID
     Route: 048
     Dates: start: 20101105
  10. POTASSIUM CHLORIDE [Concomitant]
     Dosage: 20 MEQ, QD
     Dates: start: 20101105
  11. HYDRALAZINE HCL [Concomitant]
     Dosage: 100 MG, TID
     Route: 048
     Dates: start: 20100902

REACTIONS (3)
  - THROMBOCYTOPENIA [None]
  - THERAPEUTIC RESPONSE DECREASED [None]
  - PLATELET COUNT DECREASED [None]
